FAERS Safety Report 11896446 (Version 3)
Quarter: 2016Q1

REPORT INFORMATION
  Report Type: Report from Study
  Country: CA (occurrence: CA)
  Receive Date: 20160107
  Receipt Date: 20160223
  Transmission Date: 20160526
  Serious: Yes (Death, Other)
  Sender: FDA-Public Use
  Company Number: PHHY2012CA014359

PATIENT
  Age: 59 Year
  Sex: Male

DRUGS (4)
  1. SANDOSTATIN LAR DEPOT [Suspect]
     Active Substance: OCTREOTIDE ACETATE
     Indication: ACROMEGALY
     Dosage: 20 MG, QMO (ONCE A MONTH)
     Route: 030
     Dates: start: 20120112
  2. ADALAT [Concomitant]
     Active Substance: NIFEDIPINE
     Indication: PRODUCT USED FOR UNKNOWN INDICATION
     Route: 065
  3. COVERSYL                                /BEL/ [Concomitant]
     Indication: PRODUCT USED FOR UNKNOWN INDICATION
     Route: 065
  4. CRESTOR [Concomitant]
     Active Substance: ROSUVASTATIN CALCIUM
     Indication: PRODUCT USED FOR UNKNOWN INDICATION
     Route: 065

REACTIONS (17)
  - Pyrexia [Recovered/Resolved]
  - Neoplasm malignant [Unknown]
  - Neck pain [Unknown]
  - Diarrhoea [Unknown]
  - Death [Fatal]
  - Weight increased [Unknown]
  - Paraesthesia [Unknown]
  - Cough [Recovered/Resolved]
  - Myalgia [Not Recovered/Not Resolved]
  - Headache [Unknown]
  - Blood pressure increased [Unknown]
  - Spondylitis [Unknown]
  - Injection site mass [Recovered/Resolved]
  - Libido decreased [Unknown]
  - Influenza [Unknown]
  - Spinal osteoarthritis [Unknown]
  - Malaise [Unknown]

NARRATIVE: CASE EVENT DATE: 2015
